FAERS Safety Report 24672046 (Version 2)
Quarter: 2024Q4

REPORT INFORMATION
  Report Type: Report from Study
  Country: US (occurrence: US)
  Receive Date: 20241127
  Receipt Date: 20241204
  Transmission Date: 20250114
  Serious: No
  Sender: BIOGEN
  Company Number: US-BIOGEN-2024BI01291715

PATIENT
  Sex: Female

DRUGS (2)
  1. ZURZUVAE [Suspect]
     Active Substance: ZURANOLONE
     Indication: Perinatal depression
     Route: 050
     Dates: start: 202411
  2. ZURZUVAE [Suspect]
     Active Substance: ZURANOLONE
     Route: 050
     Dates: start: 20241115

REACTIONS (4)
  - Depressed level of consciousness [Unknown]
  - Acne [Unknown]
  - Dizziness [Unknown]
  - Somnolence [Unknown]
